FAERS Safety Report 13359875 (Version 1)
Quarter: 2017Q1

REPORT INFORMATION
  Report Type: Spontaneous
  Country: NO (occurrence: NO)
  Receive Date: 20170322
  Receipt Date: 20170322
  Transmission Date: 20170429
  Serious: Yes (Hospitalization, Other)
  Sender: FDA-Public Use
  Company Number: NO-BRISTOL-MYERS SQUIBB COMPANY-BMS-2017-023967

PATIENT
  Age: 81 Year
  Sex: Female

DRUGS (1)
  1. ELIQUIS [Suspect]
     Active Substance: APIXABAN
     Indication: CEREBROVASCULAR ACCIDENT PROPHYLAXIS
     Dosage: UNK
     Route: 065
     Dates: start: 201702

REACTIONS (4)
  - Delirium [Recovering/Resolving]
  - Renal failure [Recovering/Resolving]
  - Viral infection [Recovering/Resolving]
  - General physical health deterioration [Recovering/Resolving]
